FAERS Safety Report 6137624-X (Version None)
Quarter: 2009Q1

REPORT INFORMATION
  Report Type: 
  Country: None (occurrence: None)
  Receive Date: 20090331
  Receipt Date: 20090323
  Transmission Date: 20090719
  Serious: Yes (Hospitalization)
  Sender: FDA-Public Use
  Company Number: US-BIOGENIDEC-2008BI029219

PATIENT
  Sex: Female

DRUGS (2)
  1. AVONEX [Suspect]
     Indication: MULTIPLE SCLEROSIS
     Route: 030
     Dates: start: 20050301
  2. AVONEX [Suspect]
     Route: 030
     Dates: start: 19990201, end: 20031001

REACTIONS (6)
  - ABDOMINAL PAIN [None]
  - BLOOD URINE PRESENT [None]
  - CYSTITIS [None]
  - DEHYDRATION [None]
  - RENAL MASS [None]
  - URINARY RETENTION [None]
